FAERS Safety Report 8421510-6 (Version None)
Quarter: 2012Q2

REPORT INFORMATION
  Report Type: 
  Country: None (occurrence: None)
  Receive Date: 20120608
  Receipt Date: 20120529
  Transmission Date: 20120825
  Serious: Yes (Other)
  Sender: FDA-Public Use
  Company Number: NO-JNJFOC-20120513980

PATIENT
  Age: 65 Year
  Sex: Male

DRUGS (4)
  1. METHOTREXATE [Concomitant]
  2. REMICADE [Suspect]
     Indication: RHEUMATOID ARTHRITIS
     Dosage: APPROXIMATELY 3 YEARS OF TREATMENT WITH INFLIXIMAB
     Route: 042
     Dates: start: 20080101
  3. FOLIC ACID [Concomitant]
  4. PREDNISOLONE [Concomitant]

REACTIONS (1)
  - B-CELL LYMPHOMA [None]
